FAERS Safety Report 25460003 (Version 1)
Quarter: 2025Q2

REPORT INFORMATION
  Report Type: Spontaneous
  Country: BR (occurrence: BR)
  Receive Date: 20250620
  Receipt Date: 20250620
  Transmission Date: 20250717
  Serious: Yes (Other)
  Sender: TAKEDA
  Company Number: BR-TAKEDA-2025TUS056289

PATIENT
  Sex: Male

DRUGS (2)
  1. LISDEXAMFETAMINE DIMESYLATE [Suspect]
     Active Substance: LISDEXAMFETAMINE DIMESYLATE
     Indication: Attention deficit hyperactivity disorder
  2. CONCERTA [Suspect]
     Active Substance: METHYLPHENIDATE HYDROCHLORIDE
     Indication: Attention deficit hyperactivity disorder

REACTIONS (22)
  - Schizophrenia [Unknown]
  - Psychotic disorder [Unknown]
  - Aphasia [Unknown]
  - Urge incontinence [Unknown]
  - Burnout syndrome [Unknown]
  - Persecutory delusion [Unknown]
  - Blood glucose increased [Unknown]
  - Drug effect less than expected [Unknown]
  - Loss of personal independence in daily activities [Unknown]
  - Weight increased [Unknown]
  - Abnormal behaviour [Unknown]
  - Hepatic steatosis [Unknown]
  - Arthropathy [Unknown]
  - General physical health deterioration [Unknown]
  - Feeling abnormal [Unknown]
  - Emotional distress [Unknown]
  - Emotional disorder [Unknown]
  - Fear of crowded places [Unknown]
  - Job dissatisfaction [Unknown]
  - Speech disorder [Unknown]
  - Fatigue [Unknown]
  - Depression [Unknown]
